FAERS Safety Report 23438891 (Version 2)
Quarter: 2024Q1

REPORT INFORMATION
  Report Type: Spontaneous
  Country: US (occurrence: US)
  Receive Date: 20240124
  Receipt Date: 20240207
  Transmission Date: 20240410
  Serious: No
  Sender: FDA-Public Use
  Company Number: US-SA-2024SA027593

PATIENT
  Age: 32 Year
  Sex: Male

DRUGS (4)
  1. ELOCTATE [Suspect]
     Active Substance: EFMOROCTOCOG ALFA
     Indication: Factor VIII deficiency
     Dosage: 3395 U (3056-3734), EVERY 12-24 HOURS PRN FOR BLEEDING OR FOR PROCEDURE USE
     Route: 041
  2. ELOCTATE [Suspect]
     Active Substance: EFMOROCTOCOG ALFA
     Indication: Factor VIII deficiency
     Dosage: 3395 U (3056-3734), EVERY 12-24 HOURS PRN FOR BLEEDING OR FOR PROCEDURE USE
     Route: 041
  3. ELOCTATE [Suspect]
     Active Substance: EFMOROCTOCOG ALFA
     Dosage: 3395 U (3056-3734), Q3D FOR PROPHYLAXIS
     Route: 041
  4. ELOCTATE [Suspect]
     Active Substance: EFMOROCTOCOG ALFA
     Dosage: 3395 U (3056-3734), Q3D FOR PROPHYLAXIS
     Route: 041

REACTIONS (2)
  - Haemorrhage [Not Recovered/Not Resolved]
  - Product dose omission in error [Unknown]

NARRATIVE: CASE EVENT DATE: 20240120
